FAERS Safety Report 4459158-0 (Version None)
Quarter: 2004Q3

REPORT INFORMATION
  Report Type: 
  Country: None (occurrence: None)
  Receive Date: 20040927
  Receipt Date: 20040920
  Transmission Date: 20050211
  Serious: Yes (Other)
  Sender: FDA-Public Use
  Company Number: 200417200US

PATIENT
  Sex: Female

DRUGS (5)
  1. LANTUS [Suspect]
     Indication: DIABETES MELLITUS INSULIN-DEPENDENT
     Dosage: DOSE UNIT: UNITS
     Dates: start: 20020801
  2. NOVOLOG [Concomitant]
     Dosage: DOSE: UNK
  3. HUMALOG [Concomitant]
     Dosage: DOSE: UNK
     Dates: start: 20020101
  4. ACTOS [Concomitant]
     Dosage: DOSE: UNK
     Dates: start: 20020101
  5. AMARYL [Concomitant]
     Dosage: DOSE: UNK
     Dates: start: 20020101

REACTIONS (2)
  - DRUG EXPOSURE DURING PREGNANCY [None]
  - PREMATURE LABOUR [None]
